FAERS Safety Report 5311073-6 (Version None)
Quarter: 2007Q2

REPORT INFORMATION
  Report Type: 
  Country: None (occurrence: None)
  Receive Date: 20070430
  Receipt Date: 20070419
  Transmission Date: 20071010
  Serious: Yes (Other)
  Sender: FDA-Public Use
  Company Number: NO-BRISTOL-MYERS SQUIBB COMPANY-13755020

PATIENT
  Age: 80 Year
  Sex: Male
  Weight: 88 kg

DRUGS (23)
  1. CAPTOPRIL [Suspect]
  2. EPREX [Suspect]
     Indication: NEPHROGENIC ANAEMIA
     Dosage: ALSO TOOK 14000 IU, 20000 IU, 2000 IU, AND 10000 IU
     Route: 058
     Dates: start: 19990603, end: 20010901
  3. MINDIAB [Concomitant]
     Dosage: ALSO TOOK 1.25MG
     Route: 048
  4. FUROSEMIDE [Concomitant]
     Dosage: ALSO TOOK 60MG AND 400MG
  5. DOXAZOSIN MESYLATE [Concomitant]
     Dosage: ALO TOOK 8MG AND 4MG
  6. LEVOTHYROXINE SODIUM [Concomitant]
     Indication: HYPOTHYROIDISM
     Dosage: ALSO TOOK .1MG
     Route: 048
  7. ACETYLSALICYLIC ACID SRT [Concomitant]
     Dosage: ALSO TOOK 160MG
  8. HYDROXYZINE [Concomitant]
  9. ATORVASTATIN CALCIUM [Concomitant]
  10. CARDURA [Concomitant]
     Indication: HYPERTENSION
     Dosage: ALSO TOOK 4MG
     Route: 048
  11. DIURAL [Concomitant]
     Indication: RENAL FAILURE CHRONIC
     Dosage: ALSO TOOK 250 MG
     Route: 048
  12. LIPITOR [Concomitant]
     Indication: CORONARY ARTERY DISEASE
     Route: 048
     Dates: end: 20060213
  13. VITAPLEX PLUS [Concomitant]
  14. MAGNESIUM SULFATE [Concomitant]
     Indication: HYPOMAGNESAEMIA
     Route: 048
     Dates: end: 20020119
  15. SIMVASTATIN [Concomitant]
     Indication: CARDIAC DISORDER
     Route: 048
  16. INSULATARD [Concomitant]
     Indication: DIABETES MELLITUS
     Route: 058
  17. FELODIPINE [Concomitant]
  18. KALEORID [Concomitant]
     Indication: HYPOKALAEMIA
     Route: 048
  19. ALBYL-E [Concomitant]
     Indication: CORONARY ARTERY DISEASE
     Route: 048
  20. CALCITRIOL [Concomitant]
  21. ROCALTROL [Concomitant]
     Route: 048
  22. MAGNESIUM LACTATE [Concomitant]
  23. POTASSIUM CHLORIDE [Concomitant]

REACTIONS (6)
  - ANTI-ERYTHROPOIETIN ANTIBODY [None]
  - APLASIA PURE RED CELL [None]
  - DRUG INEFFECTIVE [None]
  - PERITONITIS [None]
  - PLEURAL EFFUSION [None]
  - PNEUMONIA [None]
